FAERS Safety Report 6400622-2 (Version None)
Quarter: 2009Q4

REPORT INFORMATION
  Report Type: 
  Country: None (occurrence: None)
  Receive Date: 20091014
  Receipt Date: 20091003
  Transmission Date: 20100525
  Serious: Yes (Other)
  Sender: FDA-Public Use
  Company Number: PHHY2009MX42799

PATIENT
  Age: 80 Year
  Sex: Female

DRUGS (3)
  1. DIOVAN HCT [Suspect]
     Indication: HYPERTENSION
     Dosage: 160/25MG 1 TABLET PER DAY
     Dates: start: 20050101, end: 20090901
  2. ADALAT [Concomitant]
  3. TAMOXIFEN CITRATE [Concomitant]

REACTIONS (4)
  - BLOOD PRESSURE DECREASED [None]
  - BLOOD PRESSURE INCREASED [None]
  - BREAST DISORDER [None]
  - MASTECTOMY [None]
